FAERS Safety Report 25838011 (Version 2)
Quarter: 2025Q4

REPORT INFORMATION
  Report Type: Report from Study
  Country: US (occurrence: US)
  Receive Date: 20250923
  Receipt Date: 20251230
  Transmission Date: 20260117
  Serious: Yes (Other)
  Sender: AGIOS PHARMACEUTICALS
  Company Number: US-AGIOS-2509US04455

PATIENT
  Age: 44 Year
  Sex: Female

DRUGS (2)
  1. MITAPIVAT [Suspect]
     Active Substance: MITAPIVAT
     Indication: Pyruvate kinase deficiency anaemia
     Dosage: 5 MILLIGRAM, BID
     Route: 048
     Dates: start: 20220810
  2. MITAPIVAT [Suspect]
     Active Substance: MITAPIVAT
     Dosage: 5 MILLIGRAM, QD
     Route: 048

REACTIONS (3)
  - Rheumatoid arthritis [Not Recovered/Not Resolved]
  - Loss of personal independence in daily activities [Recovered/Resolved]
  - Inflammation [Unknown]

NARRATIVE: CASE EVENT DATE: 20250910
